FAERS Safety Report 9716798 (Version 3)
Quarter: 2013Q4

REPORT INFORMATION
  Report Type: Spontaneous
  Country: US (occurrence: US)
  Receive Date: 20131127
  Receipt Date: 20131129
  Transmission Date: 20140711
  Serious: No
  Sender: FDA-Public Use
  Company Number: US-009507513-1310USA004132

PATIENT
  Age: 58 Year
  Sex: Female

DRUGS (2)
  1. ZOSTAVAX [Suspect]
     Indication: PROPHYLAXIS
     Route: 058
     Dates: start: 20130928, end: 20130928
  2. STERILE DILUENT [Suspect]
     Indication: PROPHYLAXIS
     Dosage: UNK
     Route: 058
     Dates: start: 20130928

REACTIONS (3)
  - Injection site irritation [Recovered/Resolved]
  - Injection site erythema [Recovered/Resolved]
  - Injection site warmth [Recovered/Resolved]
